FAERS Safety Report 15592172 (Version 1)
Quarter: 2018Q4

REPORT INFORMATION
  Report Type: Spontaneous
  Country: US (occurrence: US)
  Receive Date: 20181102
  Receipt Date: 20181102
  Transmission Date: 20190205
  Serious: Yes (Hospitalization, Other)
  Sender: FDA-Public Use
  Company Number: None

PATIENT
  Age: 68 Year
  Sex: Male
  Weight: 57.15 kg

DRUGS (1)
  1. VANCOMYCIN [Suspect]
     Active Substance: VANCOMYCIN
     Indication: BACTERAEMIA
     Route: 042
     Dates: start: 20180628, end: 20180716

REACTIONS (4)
  - Anaemia of chronic disease [None]
  - Drug trough level [None]
  - Drug level above therapeutic [None]
  - Acute kidney injury [None]

NARRATIVE: CASE EVENT DATE: 20180717
